FAERS Safety Report 16639808 (Version 1)
Quarter: 2019Q3

REPORT INFORMATION
  Report Type: Spontaneous
  Country: US (occurrence: US)
  Receive Date: 20190727
  Receipt Date: 20190727
  Transmission Date: 20191004
  Serious: No
  Sender: FDA-Public Use
  Company Number: US-ZYDUS-037791

PATIENT
  Age: 68 Year
  Sex: Male

DRUGS (13)
  1. CLONAZEPAM. [Concomitant]
     Active Substance: CLONAZEPAM
     Indication: BACK PAIN
     Route: 065
  2. ESOMEPRAZOLE. [Concomitant]
     Active Substance: ESOMEPRAZOLE MAGNESIUM
     Indication: GASTROOESOPHAGEAL REFLUX DISEASE
     Route: 065
  3. COLECALCIFEROL [Concomitant]
     Active Substance: CHOLECALCIFEROL
     Indication: PRODUCT USED FOR UNKNOWN INDICATION
     Route: 065
  4. MACROGOL [Concomitant]
     Active Substance: POLYETHYLENE GLYCOLS
     Indication: PRODUCT USED FOR UNKNOWN INDICATION
     Route: 065
  5. AMITRIPTYLINE [Suspect]
     Active Substance: AMITRIPTYLINE
     Indication: DEPRESSION
     Route: 048
     Dates: start: 20190530, end: 20190530
  6. GABAPENTIN. [Concomitant]
     Active Substance: GABAPENTIN
     Indication: GROIN PAIN
     Route: 065
  7. TRAMADOL. [Concomitant]
     Active Substance: TRAMADOL
     Indication: GROIN PAIN
     Route: 065
  8. HYDROXYCHLOROQUINE [Concomitant]
     Active Substance: HYDROXYCHLOROQUINE
     Indication: RHEUMATIC DISORDER
     Route: 065
  9. DUTASTERIDE. [Suspect]
     Active Substance: DUTASTERIDE
     Indication: DYSURIA
     Route: 048
     Dates: start: 2019, end: 20190529
  10. LEVOTHYROXINE. [Concomitant]
     Active Substance: LEVOTHYROXINE
     Indication: PARATHYROIDECTOMY
     Route: 065
  11. TESTOSTERONE. [Concomitant]
     Active Substance: TESTOSTERONE
     Indication: ORCHIDECTOMY
     Route: 065
  12. POLYCARBOPHIL [Concomitant]
     Active Substance: POLYCARBOPHIL
     Indication: PRODUCT USED FOR UNKNOWN INDICATION
     Route: 065
  13. CALCIUM/COLECALCIFEROL [Concomitant]
     Indication: PARATHYROIDECTOMY
     Dosage: 315 MG CALCIUM + 200 IU VITAMIN D3
     Route: 065

REACTIONS (2)
  - Malaise [Not Recovered/Not Resolved]
  - Dizziness [Not Recovered/Not Resolved]

NARRATIVE: CASE EVENT DATE: 20190530
